FAERS Safety Report 4306927-3 (Version None)
Quarter: 2004Q1

REPORT INFORMATION
  Report Type: 
  Country: None (occurrence: None)
  Receive Date: 20040227
  Receipt Date: 20031222
  Transmission Date: 20041129
  Serious: Yes (Hospitalization)
  Sender: FDA-Public Use
  Company Number: WAES 0401USA00146

PATIENT
  Age: 69 Year
  Sex: Male

DRUGS (5)
  1. FOSAMAX [Suspect]
     Route: 048
  2. TAKEPRON [Concomitant]
     Route: 048
  3. MAGNESIUM OXIDE [Concomitant]
     Route: 048
  4. PREDONINE [Concomitant]
  5. URSO [Concomitant]
     Route: 048

REACTIONS (1)
  - DUODENITIS HAEMORRHAGIC [None]
